FAERS Safety Report 5354392-X (Version None)
Quarter: 2007Q2

REPORT INFORMATION
  Report Type: 
  Country: None (occurrence: None)
  Receive Date: 20070612
  Receipt Date: 20070604
  Transmission Date: 20071010
  Serious: Yes (Hospitalization)
  Sender: FDA-Public Use
  Company Number: US-JNJFOC-20070601412

PATIENT
  Sex: Female
  Weight: 79.83 kg

DRUGS (4)
  1. RISPERDAL CONSTA [Suspect]
     Route: 030
  2. RISPERDAL CONSTA [Suspect]
     Indication: PARANOIA
     Route: 030
  3. RISPERDAL CONSTA [Suspect]
     Indication: DEMENTIA
     Route: 030
  4. LASIX [Concomitant]

REACTIONS (2)
  - HAEMORRHAGE URINARY TRACT [None]
  - VAGINAL HAEMORRHAGE [None]
